FAERS Safety Report 9086994 (Version 1)
Quarter: 2013Q1

REPORT INFORMATION
  Report Type: Report from Study
  Country: CA (occurrence: CA)
  Receive Date: 20130217
  Receipt Date: 20130217
  Transmission Date: 20140127
  Serious: Yes (Other)
  Sender: FDA-Public Use
  Company Number: CA-JNJFOC-20130205626

PATIENT
  Age: 54 Year
  Sex: Female
  Weight: 77 kg

DRUGS (3)
  1. REMICADE [Suspect]
     Indication: RHEUMATOID ARTHRITIS
     Route: 042
     Dates: start: 2007
  2. METHOTREXATE [Concomitant]
     Dosage: WEEKLY
     Route: 048
  3. PREDNISONE [Concomitant]
     Route: 065

REACTIONS (1)
  - Basal cell carcinoma [Unknown]
